FAERS Safety Report 18001287 (Version 1)
Quarter: 2020Q3

REPORT INFORMATION
  Report Type: Report from Study
  Country: AR (occurrence: AR)
  Receive Date: 20200709
  Receipt Date: 20200709
  Transmission Date: 20201103
  Serious: Yes (Hospitalization, Other)
  Sender: FDA-Public Use
  Company Number: NVSC2020AR189783

PATIENT
  Sex: Female

DRUGS (1)
  1. ONBREZ [Suspect]
     Active Substance: INDACATEROL
     Indication: CHRONIC OBSTRUCTIVE PULMONARY DISEASE
     Dosage: 1 DF, QD
     Route: 065

REACTIONS (7)
  - Lung disorder [Unknown]
  - Haemorrhage [Unknown]
  - Peripheral swelling [Unknown]
  - Gait disturbance [Unknown]
  - Blood pressure decreased [Unknown]
  - Fall [Unknown]
  - Dyspnoea [Unknown]
